FAERS Safety Report 5163272-4 (Version None)
Quarter: 2006Q4

REPORT INFORMATION
  Report Type: 
  Country: None (occurrence: None)
  Receive Date: 20061204
  Receipt Date: 20061129
  Transmission Date: 20070319
  Serious: Yes (Death)
  Sender: FDA-Public Use
  Company Number: PHBS2006CL18574

PATIENT
  Age: 82 Year
  Sex: Male

DRUGS (1)
  1. TAREG D [Suspect]
     Indication: HYPERTENSION
     Dosage: 80/12.5 MG/DAY
     Route: 048

REACTIONS (1)
  - CARDIAC FAILURE [None]
